FAERS Safety Report 12651848 (Version 3)
Quarter: 2016Q4

REPORT INFORMATION
  Report Type: Spontaneous
  Country: HR (occurrence: HR)
  Receive Date: 20160815
  Receipt Date: 20161227
  Transmission Date: 20170207
  Serious: Yes (Death, Life-Threatening, Hospitalization, Other)
  Sender: FDA-Public Use
  Company Number: HR-JNJFOC-20160808328

PATIENT
  Age: 95 Year
  Sex: Female

DRUGS (7)
  1. VOLTAREN [Suspect]
     Active Substance: DICLOFENAC SODIUM
     Indication: LIGAMENT SPRAIN
     Route: 065
     Dates: start: 20160706, end: 20160708
  2. LANITOP [Concomitant]
     Active Substance: METILDIGOXIN
     Indication: ISCHAEMIC CARDIOMYOPATHY
     Route: 048
  3. ASPIRIN. [Suspect]
     Active Substance: ASPIRIN
     Indication: ANTICOAGULANT THERAPY
     Route: 048
     Dates: start: 20160715
  4. PROMAZINE HYDROCHLORIDE [Concomitant]
     Active Substance: PROMAZINE HYDROCHLORIDE
     Indication: DEMENTIA
     Route: 048
     Dates: start: 201606
  5. FURSEMIDE [Concomitant]
     Indication: ISCHAEMIC CARDIOMYOPATHY
     Route: 048
  6. ZALDIAR [Suspect]
     Active Substance: ACETAMINOPHEN\TRAMADOL HYDROCHLORIDE
     Indication: LIGAMENT SPRAIN
     Route: 048
     Dates: start: 20160606, end: 20160708
  7. PRADAXA [Interacting]
     Active Substance: DABIGATRAN ETEXILATE MESYLATE
     Indication: ATRIAL FIBRILLATION
     Route: 048
     Dates: end: 20160708

REACTIONS (6)
  - Chronic kidney disease [Recovering/Resolving]
  - Hyperglycaemia [Recovering/Resolving]
  - Drug interaction [Unknown]
  - Overdose [Recovering/Resolving]
  - Intestinal haemorrhage [Fatal]
  - Normochromic normocytic anaemia [Recovering/Resolving]

NARRATIVE: CASE EVENT DATE: 20160709
